FAERS Safety Report 16065187 (Version 1)
Quarter: 2019Q1

REPORT INFORMATION
  Report Type: Spontaneous
  Country: US (occurrence: US)
  Receive Date: 20190313
  Receipt Date: 20190313
  Transmission Date: 20190418
  Serious: No
  Sender: FDA-Public Use
  Company Number: US-AMGEN-USASL2019035703

PATIENT

DRUGS (1)
  1. REPATHA [Suspect]
     Active Substance: EVOLOCUMAB
     Indication: PRODUCT USED FOR UNKNOWN INDICATION
     Dosage: UNK
     Route: 065

REACTIONS (11)
  - Blood uric acid abnormal [Unknown]
  - Fatigue [Unknown]
  - Dyspnoea [Unknown]
  - Pain of skin [Unknown]
  - Neck pain [Unknown]
  - Chest pain [Unknown]
  - Myalgia [Unknown]
  - Musculoskeletal pain [Unknown]
  - Toothache [Unknown]
  - Pain [Unknown]
  - Pain in jaw [Unknown]
